FAERS Safety Report 25423228 (Version 1)
Quarter: 2025Q2

REPORT INFORMATION
  Report Type: Spontaneous
  Country: US (occurrence: US)
  Receive Date: 20250611
  Receipt Date: 20250611
  Transmission Date: 20250717
  Serious: Yes (Hospitalization, Other)
  Sender: PFIZER
  Company Number: US-PFIZER INC-202500103317

PATIENT
  Age: 67 Year
  Sex: Male

DRUGS (1)
  1. LABETALOL HYDROCHLORIDE [Suspect]
     Active Substance: LABETALOL HYDROCHLORIDE
     Route: 008
     Dates: start: 20250516, end: 20250516

REACTIONS (5)
  - Headache [Unknown]
  - Neck pain [Unknown]
  - Pyrexia [Unknown]
  - Incorrect route of product administration [Unknown]
  - Eye disorder [Unknown]

NARRATIVE: CASE EVENT DATE: 20250516
